FAERS Safety Report 14401955 (Version 2)
Quarter: 2018Q2

REPORT INFORMATION
  Report Type: Report from Study
  Country: BE (occurrence: BE)
  Receive Date: 20180117
  Receipt Date: 20180430
  Transmission Date: 20180711
  Serious: Yes (Death)
  Sender: FDA-Public Use
  Company Number: PHHY2018BE005084

PATIENT
  Age: 78 Year
  Sex: Male
  Weight: 66.4 kg

DRUGS (1)
  1. AMN107 [Suspect]
     Active Substance: NILOTINIB
     Indication: GASTROINTESTINAL STROMAL TUMOUR
     Dosage: 400 MG, BID
     Route: 048
     Dates: start: 20121228, end: 20161215

REACTIONS (1)
  - Death [Fatal]

NARRATIVE: CASE EVENT DATE: 20161216
